FAERS Safety Report 9048533 (Version 1)
Quarter: 2013Q1

REPORT INFORMATION
  Report Type: Spontaneous
  Country: US (occurrence: None)
  Receive Date: 20130116
  Receipt Date: 20130116
  Transmission Date: 20140127
  Serious: Yes (Hospitalization)
  Sender: FDA-Public Use
  Company Number: ADR-2013-00045

PATIENT
  Sex: Female

DRUGS (4)
  1. BACLOFEN INTRATHECAL [Suspect]
     Indication: BACK PAIN
  2. DILAUDID (HYDROMORPHONE) [Concomitant]
  3. CLONIDINE [Concomitant]
  4. KETAMINE INTRATHECAL [Concomitant]

REACTIONS (2)
  - Chronic obstructive pulmonary disease [None]
  - Pain [None]
